FAERS Safety Report 7689559-9 (Version None)
Quarter: 2011Q3

REPORT INFORMATION
  Report Type: 
  Country: None (occurrence: None)
  Receive Date: 20110817
  Receipt Date: 20110815
  Transmission Date: 20111222
  Serious: Yes (Life-Threatening, Hospitalization, Other)
  Sender: FDA-Public Use
  Company Number: US-B.I. PHARMACEUTICALS,INC./RIDGEFIELD-2011-BP-18234BP

PATIENT
  Sex: Male
  Weight: 110.22 kg

DRUGS (6)
  1. PRADAXA [Suspect]
     Indication: ATRIAL FIBRILLATION
     Dosage: 300 MG
     Route: 048
  2. PLAVIX [Concomitant]
     Indication: CEREBROVASCULAR ACCIDENT PROPHYLAXIS
     Dosage: 75 MG
     Route: 048
  3. METOPROLOL TARTRATE [Concomitant]
  4. LISINOPRIL [Concomitant]
  5. ASPIRIN [Concomitant]
     Indication: CEREBROVASCULAR ACCIDENT PROPHYLAXIS
     Dosage: 325 MG
     Route: 048
  6. AMIODARONE HCL [Concomitant]

REACTIONS (2)
  - POST PROCEDURAL MYOCARDIAL INFARCTION [None]
  - ACUTE MYOCARDIAL INFARCTION [None]
